FAERS Safety Report 21956935 (Version 1)
Quarter: 2023Q1

REPORT INFORMATION
  Report Type: Spontaneous
  Country: IN (occurrence: IN)
  Receive Date: 20230206
  Receipt Date: 20230206
  Transmission Date: 20230417
  Serious: Yes (Death, Life-Threatening, Hospitalization, Other)
  Sender: FDA-Public Use
  Company Number: IN-MLMSERVICE-20230125-4057415-1

PATIENT
  Age: 50 Year
  Sex: Male

DRUGS (2)
  1. MYCOPHENOLATE MOFETIL [Suspect]
     Active Substance: MYCOPHENOLATE MOFETIL
     Indication: Prophylaxis against graft versus host disease
  2. DEXAMETHASONE [Suspect]
     Active Substance: DEXAMETHASONE
     Indication: Prophylaxis against graft versus host disease

REACTIONS (14)
  - Cardiac arrest [Fatal]
  - Renal impairment [Fatal]
  - Hyponatraemia [Fatal]
  - Thrombocytopenia [Fatal]
  - Fournier^s gangrene [Fatal]
  - Haemodynamic instability [Fatal]
  - Aeromonas infection [Fatal]
  - Anuria [Fatal]
  - Thrombocytopenia [Fatal]
  - Atrial fibrillation [Fatal]
  - Bacterial sepsis [Fatal]
  - Multiple organ dysfunction syndrome [Fatal]
  - Renal impairment [Fatal]
  - Necrotising fasciitis [Fatal]
